FAERS Safety Report 5908727-7 (Version None)
Quarter: 2008Q4

REPORT INFORMATION
  Report Type: 
  Country: None (occurrence: None)
  Receive Date: 20081006
  Receipt Date: 20080925
  Transmission Date: 20090506
  Serious: Yes (Hospitalization)
  Sender: FDA-Public Use
  Company Number: B0538749A

PATIENT
  Age: 50 Year
  Sex: Male

DRUGS (18)
  1. ZOPHREN [Suspect]
     Indication: DRUG USE FOR UNKNOWN INDICATION
     Dosage: 4MG THREE TIMES PER DAY
     Route: 048
     Dates: start: 20080725, end: 20080801
  2. LOVENOX [Suspect]
     Indication: DRUG USE FOR UNKNOWN INDICATION
     Route: 042
     Dates: start: 20080717, end: 20080729
  3. SKENAN [Suspect]
     Indication: DRUG USE FOR UNKNOWN INDICATION
     Route: 048
     Dates: start: 20080725, end: 20080802
  4. MORPHINE [Suspect]
     Indication: DRUG USE FOR UNKNOWN INDICATION
     Dosage: 40MG PER DAY
     Route: 048
     Dates: start: 20080724, end: 20080729
  5. PROPOXYPHENE HCL AND ACETAMINOPHEN [Suspect]
     Indication: DRUG USE FOR UNKNOWN INDICATION
     Dosage: 2U THREE TIMES PER DAY
     Route: 048
     Dates: start: 20080718, end: 20080723
  6. TARGOCID [Suspect]
     Indication: DRUG USE FOR UNKNOWN INDICATION
     Dosage: 800MG TWICE PER DAY
     Route: 042
     Dates: start: 20080724, end: 20080802
  7. BRISTOPEN [Suspect]
     Indication: DRUG USE FOR UNKNOWN INDICATION
     Dosage: 2G SIX TIMES PER DAY
     Route: 042
     Dates: start: 20080721, end: 20080724
  8. RIFADIN [Suspect]
     Indication: DRUG USE FOR UNKNOWN INDICATION
     Dosage: 900MG TWICE PER DAY
     Route: 048
     Dates: start: 20080728, end: 20080804
  9. ATARAX [Suspect]
     Indication: DRUG USE FOR UNKNOWN INDICATION
     Dosage: 100MG PER DAY
     Route: 048
     Dates: start: 20080715, end: 20080716
  10. BI-PROFENID [Suspect]
     Indication: DRUG USE FOR UNKNOWN INDICATION
     Dosage: 2UNIT PER DAY
     Dates: start: 20080721, end: 20080724
  11. PERFALGAN [Suspect]
     Indication: DRUG USE FOR UNKNOWN INDICATION
     Dosage: 1G FOUR TIMES PER DAY
     Route: 042
     Dates: start: 20080716, end: 20080729
  12. HYDROCORTISONE [Concomitant]
     Indication: ADRENAL DISORDER
     Route: 042
     Dates: start: 20080805, end: 20080810
  13. FOSFOMYCINE [Concomitant]
     Route: 065
     Dates: start: 20080811
  14. CLAFORAN [Concomitant]
     Route: 065
     Dates: start: 20080811
  15. VANCOMYCIN HCL [Concomitant]
     Route: 065
     Dates: start: 20080801
  16. FUCIDINE CAP [Concomitant]
     Route: 065
     Dates: start: 20080801
  17. DAFALGAN [Concomitant]
     Indication: DRUG USE FOR UNKNOWN INDICATION
     Route: 048
     Dates: start: 20080729
  18. NEXIUM [Concomitant]
     Indication: DRUG USE FOR UNKNOWN INDICATION
     Route: 048
     Dates: start: 20080716

REACTIONS (3)
  - EOSINOPHIL COUNT INCREASED [None]
  - ERYTHEMA MULTIFORME [None]
  - TOXIC SKIN ERUPTION [None]
